FAERS Safety Report 4390099-3 (Version None)
Quarter: 2004Q2

REPORT INFORMATION
  Report Type: 
  Country: None (occurrence: None)
  Receive Date: 20040630
  Receipt Date: 20040615
  Transmission Date: 20050107
  Serious: Yes (Other)
  Sender: FDA-Public Use
  Company Number: JP-JNJFOC-20040300493

PATIENT
  Age: 54 Year
  Sex: Female
  Weight: 40 kg

DRUGS (8)
  1. REMICADE [Suspect]
     Indication: ANAL FISTULA
     Dosage: SEE IMAGE
     Route: 042
     Dates: start: 20030917, end: 20030917
  2. REMICADE [Suspect]
     Indication: CROHN'S DISEASE
     Dosage: SEE IMAGE
     Route: 042
     Dates: start: 20030917, end: 20030917
  3. REMICADE [Suspect]
     Indication: ANAL FISTULA
     Dosage: SEE IMAGE
     Route: 042
     Dates: start: 20031119, end: 20031119
  4. REMICADE [Suspect]
     Indication: CROHN'S DISEASE
     Dosage: SEE IMAGE
     Route: 042
     Dates: start: 20031119, end: 20031119
  5. REMICADE [Suspect]
     Indication: ANAL FISTULA
     Dosage: SEE IMAGE
     Route: 042
     Dates: start: 20040303, end: 20040303
  6. REMICADE [Suspect]
     Indication: CROHN'S DISEASE
     Dosage: SEE IMAGE
     Route: 042
     Dates: start: 20040303, end: 20040303
  7. PENTASA [Concomitant]
  8. TOTAL PARENTERAL NUTRITION (POLYVINYL ALCOHOL) [Concomitant]

REACTIONS (3)
  - AGRANULOCYTOSIS [None]
  - DRUG EFFECT DECREASED [None]
  - WHITE BLOOD CELL COUNT DECREASED [None]
